FAERS Safety Report 5508758-5 (Version None)
Quarter: 2007Q4

REPORT INFORMATION
  Report Type: 
  Country: None (occurrence: None)
  Receive Date: 20071107
  Receipt Date: 20071102
  Transmission Date: 20080405
  Serious: Yes (Other)
  Sender: FDA-Public Use
  Company Number: A0691259A

PATIENT
  Age: 7 Year
  Sex: Female

DRUGS (2)
  1. LAMICTAL [Suspect]
     Indication: CONVULSION
     Dosage: 10MG TWICE PER DAY
     Route: 048
     Dates: start: 20070928, end: 20071028
  2. NO CONCURRENT MEDICATION [Concomitant]

REACTIONS (4)
  - CONVULSION [None]
  - HEADACHE [None]
  - INSOMNIA [None]
  - INTENTIONAL SELF-INJURY [None]
